FAERS Safety Report 12283794 (Version 1)
Quarter: 2016Q2

REPORT INFORMATION
  Report Type: Spontaneous
  Country: US (occurrence: US)
  Receive Date: 20160419
  Receipt Date: 20160419
  Transmission Date: 20160815
  Serious: No
  Sender: FDA-Public Use
  Company Number: US-BANPHARM-20153769

PATIENT
  Age: 38 Year
  Sex: Female
  Weight: 56.69 kg

DRUGS (2)
  1. NAPROXEN SODIUM 220 MG [Suspect]
     Active Substance: NAPROXEN SODIUM
     Indication: MIGRAINE
     Dosage: 440 MG, QD-BID, PRN,
     Route: 048
     Dates: start: 201501
  2. NAPROXEN SODIUM 220 MG [Suspect]
     Active Substance: NAPROXEN SODIUM
     Indication: MIGRAINE
     Dosage: 880 MG, SINGLE
     Route: 048
     Dates: start: 20150323, end: 20150323

REACTIONS (4)
  - Palpitations [Unknown]
  - Incorrect dose administered [Unknown]
  - Palpitations [Not Recovered/Not Resolved]
  - Wrong drug administered [Unknown]

NARRATIVE: CASE EVENT DATE: 201501
